FAERS Safety Report 19374783 (Version 5)
Quarter: 2021Q2

REPORT INFORMATION
  Report Type: Spontaneous
  Country: US (occurrence: US)
  Receive Date: 20210604
  Receipt Date: 20210622
  Transmission Date: 20210717
  Serious: Yes (Other)
  Sender: FDA-Public Use
  Company Number: US-SA-2021SA173682

PATIENT
  Age: 22 Year
  Sex: Male

DRUGS (1)
  1. LOVENOX [Suspect]
     Active Substance: ENOXAPARIN SODIUM
     Dosage: 40MG IN, 4ML
     Route: 065

REACTIONS (2)
  - Injury associated with device [Unknown]
  - Device deployment issue [Unknown]
